FAERS Safety Report 4585356-1 (Version None)
Quarter: 2005Q1

REPORT INFORMATION
  Report Type: 
  Country: None (occurrence: None)
  Receive Date: 20050217
  Receipt Date: 20050124
  Transmission Date: 20050727
  Serious: Yes (Other)
  Sender: FDA-Public Use
  Company Number: 200510317JP

PATIENT
  Age: 24 Year
  Sex: Male

DRUGS (6)
  1. KETEK [Suspect]
     Indication: BRONCHITIS ACUTE
     Route: 048
     Dates: start: 20040119, end: 20040123
  2. SELBEX [Concomitant]
     Indication: GASTRIC DISORDER
     Route: 048
     Dates: start: 20040119, end: 20040123
  3. SELBEX [Concomitant]
     Indication: PROPHYLAXIS
     Route: 048
     Dates: start: 20040119, end: 20040123
  4. KIPRES [Concomitant]
     Indication: ALLERGIC RESPIRATORY DISEASE
     Route: 048
     Dates: start: 20040119, end: 20040123
  5. KIPRES [Concomitant]
     Indication: HYPERSENSITIVITY
     Route: 048
     Dates: start: 20040119, end: 20040123
  6. UNIPHYL [Concomitant]
     Indication: BRONCHITIS
     Route: 048
     Dates: start: 20040119, end: 20040123

REACTIONS (4)
  - EPILEPSY [None]
  - FATIGUE [None]
  - INSOMNIA [None]
  - LOSS OF CONSCIOUSNESS [None]
